FAERS Safety Report 6104469-6 (Version None)
Quarter: 2009Q1

REPORT INFORMATION
  Report Type: 
  Country: None (occurrence: None)
  Receive Date: 20090305
  Receipt Date: 20090303
  Transmission Date: 20090719
  Serious: Yes (Hospitalization, Other)
  Sender: FDA-Public Use
  Company Number: US-SANOFI-SYNTHELABO-F01200801480

PATIENT
  Sex: Female

DRUGS (5)
  1. CAPECITABINE [Suspect]
     Dosage: BID
     Route: 048
     Dates: start: 20080731
  2. AVASTIN [Concomitant]
     Dosage: UNK
     Route: 065
  3. DECADRON [Concomitant]
     Dosage: UNK
     Route: 065
  4. ZOFRAN [Suspect]
     Indication: NAUSEA
     Route: 042
     Dates: start: 20080731
  5. OXALIPLATIN [Suspect]
     Indication: COLON CANCER METASTATIC
     Dosage: UNK
     Route: 041
     Dates: start: 20080731, end: 20080731

REACTIONS (5)
  - DEHYDRATION [None]
  - DIPLOPIA [None]
  - DISEASE PROGRESSION [None]
  - HYPOAESTHESIA [None]
  - THROAT TIGHTNESS [None]
